FAERS Safety Report 9695887 (Version 1)
Quarter: 2013Q4

REPORT INFORMATION
  Report Type: Spontaneous
  Country: US (occurrence: None)
  Receive Date: 20131118
  Receipt Date: 20131118
  Transmission Date: 20140711
  Serious: No
  Sender: FDA-Public Use
  Company Number: None

PATIENT
  Age: 25 Year
  Sex: 0

DRUGS (1)
  1. METHYLPHENIDATE ER [Suspect]
     Route: 048

REACTIONS (6)
  - Somnolence [None]
  - Dizziness [None]
  - Somnolence [None]
  - Product quality issue [None]
  - Unevaluable event [None]
  - Drug ineffective [None]
